FAERS Safety Report 11697860 (Version 1)
Quarter: 2015Q4

REPORT INFORMATION
  Report Type: Spontaneous
  Country: US (occurrence: US)
  Receive Date: 20151104
  Receipt Date: 20151104
  Transmission Date: 20160304
  Serious: No
  Sender: FDA-Public Use
  Company Number: US-APOPHARMA USA, INC.-2012AP000491

PATIENT
  Age: 81 Year
  Sex: Female
  Weight: 49.4 kg

DRUGS (3)
  1. FERRIPROX [Suspect]
     Active Substance: DEFERIPRONE
     Indication: IRON OVERLOAD
     Route: 048
     Dates: start: 20120215
  2. ADVIL [Concomitant]
     Active Substance: IBUPROFEN
     Route: 048
  3. ARANESP [Concomitant]
     Active Substance: DARBEPOETIN ALFA

REACTIONS (1)
  - Dizziness [Recovering/Resolving]

NARRATIVE: CASE EVENT DATE: 20120216
